FAERS Safety Report 5473491-5 (Version None)
Quarter: 2007Q4

REPORT INFORMATION
  Report Type: 
  Country: None (occurrence: None)
  Receive Date: 20071001
  Receipt Date: 20070921
  Transmission Date: 20080405
  Serious: Yes (Death)
  Sender: FDA-Public Use
  Company Number: US-ELI_LILLY_AND_COMPANY-US200709004779

PATIENT
  Age: 95 Year
  Sex: Female

DRUGS (4)
  1. ZYPREXA [Suspect]
     Indication: AGGRESSION
     Dosage: 10 MG, DAILY (1/D)
     Route: 048
  2. ZYPREXA [Suspect]
     Dosage: 20 MG, DAILY (1/D)
     Route: 048
  3. ARICEPT [Concomitant]
     Indication: DEMENTIA ALZHEIMER'S TYPE
  4. NAMENDA [Concomitant]

REACTIONS (1)
  - MYOCARDIAL INFARCTION [None]
